FAERS Safety Report 9353358 (Version 1)
Quarter: 2013Q2

REPORT INFORMATION
  Report Type: Spontaneous
  Country: US (occurrence: US)
  Receive Date: 20130618
  Receipt Date: 20130618
  Transmission Date: 20140414
  Serious: Yes (Hospitalization)
  Sender: FDA-Public Use
  Company Number: US-LUNDBECK-DKLU1091593

PATIENT
  Age: 8 Year
  Sex: Male

DRUGS (1)
  1. SABRIL (FOR ORAL SOLUTION) [Suspect]
     Indication: GENERALISED NON-CONVULSIVE EPILEPSY
     Route: 048
     Dates: start: 20130521

REACTIONS (1)
  - Hypersensitivity [Unknown]
